FAERS Safety Report 23631378 (Version 2)
Quarter: 2024Q1

REPORT INFORMATION
  Report Type: Spontaneous
  Country: FI (occurrence: FI)
  Receive Date: 20240314
  Receipt Date: 20240321
  Transmission Date: 20240409
  Serious: Yes (Other)
  Sender: FDA-Public Use
  Company Number: FI-SANOFI-01971031

PATIENT
  Age: 71 Year
  Sex: Female

DRUGS (4)
  1. LANTUS [Suspect]
     Active Substance: INSULIN GLARGINE
     Indication: Type 2 diabetes mellitus
     Dosage: 60 IU, QD
  2. LANTUS [Suspect]
     Active Substance: INSULIN GLARGINE
     Dosage: 13-14 UNITS
  3. INSULIN ASPART [Suspect]
     Active Substance: INSULIN ASPART
     Dosage: UNK
  4. REPATHA [Concomitant]
     Active Substance: EVOLOCUMAB

REACTIONS (5)
  - Myocardial infarction [Unknown]
  - Blood glucose decreased [Unknown]
  - Surgery [Recovered/Resolved]
  - Wrong product administered [Unknown]
  - Intentional device use issue [Unknown]
